FAERS Safety Report 21806839 (Version 2)
Quarter: 2023Q1

REPORT INFORMATION
  Report Type: Spontaneous
  Country: US (occurrence: US)
  Receive Date: 20230102
  Receipt Date: 20230104
  Transmission Date: 20230418
  Serious: Yes (Other)
  Sender: FDA-Public Use
  Company Number: US-BAUSCH-BL-2022-028329

PATIENT
  Age: 69 Year
  Sex: Male

DRUGS (3)
  1. BUPROPION HYDROCHLORIDE XL [Suspect]
     Active Substance: BUPROPION HYDROCHLORIDE
     Indication: Major depression
     Dosage: EXTENDED RELEASE (XL)
     Route: 065
  2. BUPROPION HYDROCHLORIDE [Suspect]
     Active Substance: BUPROPION HYDROCHLORIDE
     Indication: Major depression
     Dosage: SUSTAINED RELEASE (SR)
     Route: 065
  3. VORTIOXETINE [Concomitant]
     Active Substance: VORTIOXETINE
     Indication: Major depression

REACTIONS (2)
  - Drug level increased [Unknown]
  - Renal impairment [Unknown]
